FAERS Safety Report 9208670 (Version 2)
Quarter: 2013Q3

REPORT INFORMATION
  Report Type: Spontaneous
  Country: US (occurrence: None)
  Receive Date: 20120817
  Receipt Date: 20130815
  Transmission Date: 20140515
  Serious: Yes (Other)
  Sender: FDA-Public Use
  Company Number: ADR-2012-00967

PATIENT
  Sex: Male

DRUGS (2)
  1. LIORESAL INTRATHECAL (BACLOFEN INJECTION)2000 MCG/ML [Suspect]
     Indication: MUSCLE SPASTICITY
  2. LIORESAL INTRATHECAL (BACLOFEN INJECTION)2000 MCG/ML [Suspect]
     Indication: HEAD INJURY

REACTIONS (3)
  - Therapeutic response unexpected [None]
  - Implant site discharge [None]
  - Musculoskeletal stiffness [None]
